FAERS Safety Report 20767857 (Version 1)
Quarter: 2022Q2

REPORT INFORMATION
  Report Type: Spontaneous
  Country: IT (occurrence: IT)
  Receive Date: 20220429
  Receipt Date: 20220429
  Transmission Date: 20220720
  Serious: Yes (Other)
  Sender: FDA-Public Use
  Company Number: IT-MINISAL02-861644

PATIENT
  Age: 73 Year
  Sex: Male
  Weight: 62 kg

DRUGS (4)
  1. IRINOTECAN [Suspect]
     Active Substance: IRINOTECAN
     Indication: Adenocarcinoma of colon
     Dosage: 300 MILLIGRAM, CYCLICAL (1 CYCLE)
     Route: 065
     Dates: start: 20211108
  2. FLUOROURACIL [Suspect]
     Active Substance: FLUOROURACIL
     Indication: Adenocarcinoma of colon
     Dosage: 670 MILLIGRAM, CYCLICAL (1 CYCLE)
     Route: 040
     Dates: start: 20211108
  3. FLUOROURACIL [Suspect]
     Active Substance: FLUOROURACIL
     Dosage: 4030 MILLIGRAM, CYCLICAL (1 CYCLE)
     Route: 041
  4. LEVOLEUCOVORIN CALCIUM [Concomitant]
     Active Substance: LEVOLEUCOVORIN CALCIUM
     Indication: Adenocarcinoma of colon
     Dosage: 330 MILLIGRAM, CYCLICAL (1 CYCLE)
     Dates: start: 20211108

REACTIONS (2)
  - Campylobacter gastroenteritis [Recovering/Resolving]
  - Campylobacter infection [Recovering/Resolving]

NARRATIVE: CASE EVENT DATE: 20220319
